FAERS Safety Report 5007833-1 (Version None)
Quarter: 2006Q2

REPORT INFORMATION
  Report Type: 
  Country: None (occurrence: None)
  Receive Date: 20060522
  Receipt Date: 20060512
  Transmission Date: 20061013
  Serious: Yes (Other)
  Sender: FDA-Public Use
  Company Number: PHBS2006FI07297

PATIENT
  Age: 62 Year
  Sex: Female

DRUGS (5)
  1. PREDNISOLONE [Concomitant]
     Indication: MULTIPLE MYELOMA
     Dosage: 100 MG/D
     Route: 048
  2. SENDOXAN [Concomitant]
     Indication: MULTIPLE MYELOMA
     Dosage: 300 MG, QW
     Route: 048
  3. DURAGESIC-100 [Concomitant]
     Indication: PAIN
     Dosage: 100 UNK, Q72H
     Route: 062
  4. KALCIPOS-D [Concomitant]
     Dosage: 1 TABLET/D
     Route: 048
  5. ZOMETA [Suspect]
     Indication: MULTIPLE MYELOMA
     Dosage: 4 MG, QMO
     Route: 042
     Dates: end: 20051101

REACTIONS (6)
  - ACTINOMYCOSIS [None]
  - DRUG EFFECT DECREASED [None]
  - GINGIVAL INFECTION [None]
  - OSTEONECROSIS [None]
  - THERAPEUTIC PROCEDURE [None]
  - TOOTH INFECTION [None]
